FAERS Safety Report 4399485-9 (Version None)
Quarter: 2004Q3

REPORT INFORMATION
  Report Type: 
  Country: None (occurrence: None)
  Receive Date: 20040716
  Receipt Date: 20040608
  Transmission Date: 20050211
  Serious: Yes (Disabling)
  Sender: FDA-Public Use
  Company Number: PHEH2004US06349

PATIENT
  Age: 64 Year
  Sex: Male

DRUGS (9)
  1. TRILEPTAL [Suspect]
     Indication: BIPOLAR DISORDER
     Dosage: 300 MG, BID
     Route: 048
     Dates: start: 20040326
  2. ABILIFY [Concomitant]
  3. DEPAKOTE [Concomitant]
     Indication: BIPOLAR DISORDER
     Dosage: 1500 MG, QHS
  4. SKELAXIN [Concomitant]
  5. SIMVASTATIN [Concomitant]
  6. TOPRAL [Concomitant]
  7. HYDROCHLOROTHIAZIDE [Concomitant]
  8. LISINOPRIL [Concomitant]
  9. ASPIRIN [Concomitant]

REACTIONS (5)
  - CONDITION AGGRAVATED [None]
  - GAIT DISTURBANCE [None]
  - MANIA [None]
  - MUSCULOSKELETAL DISORDER [None]
  - TORTICOLLIS [None]
